FAERS Safety Report 7397593-1 (Version None)
Quarter: 2011Q2

REPORT INFORMATION
  Report Type: 
  Country: None (occurrence: None)
  Receive Date: 20110406
  Receipt Date: 20110329
  Transmission Date: 20111010
  Serious: Yes (Other)
  Sender: FDA-Public Use
  Company Number: JP-MERCK-1104USA00091

PATIENT
  Age: 98 Year
  Sex: Female
  Weight: 50 kg

DRUGS (6)
  1. CALCIUM POLYSTYRENE SULFONATE [Concomitant]
     Indication: RENAL FAILURE CHRONIC
     Route: 065
  2. PEPCID [Suspect]
     Route: 041
  3. DEXMEDETOMIDINE [Suspect]
     Indication: SEDATION
     Route: 041
  4. BENIDIPINE HYDROCHLORIDE [Concomitant]
     Indication: HYPERTENSION
     Route: 065
  5. DEXMEDETOMIDINE [Suspect]
     Route: 041
  6. BUPIVACAINE HYDROCHLORIDE [Concomitant]
     Indication: SPINAL ANAESTHESIA
     Route: 065

REACTIONS (1)
  - BLOOD PRESSURE DECREASED [None]
